FAERS Safety Report 9333840 (Version 1)
Quarter: 2013Q2

REPORT INFORMATION
  Report Type: Spontaneous
  Country: US (occurrence: US)
  Receive Date: 20130606
  Receipt Date: 20130606
  Transmission Date: 20140414
  Serious: Yes (Other)
  Sender: FDA-Public Use
  Company Number: US-AMGEN-USASP2013002137

PATIENT
  Age: 64 Year
  Sex: Female
  Weight: 79.37 kg

DRUGS (5)
  1. PROLIA [Suspect]
     Indication: OSTEOPOROSIS POSTMENOPAUSAL
     Dosage: 60 MG, Q6MO
     Route: 058
     Dates: start: 20120808, end: 20130121
  2. CALCIUM WITH VITAMIN D3 [Concomitant]
  3. VITAMIN D                          /00107901/ [Concomitant]
  4. FISH OIL [Concomitant]
  5. MAGNESIUM [Concomitant]

REACTIONS (1)
  - Dermatitis [Not Recovered/Not Resolved]
